FAERS Safety Report 9913831 (Version 1)
Quarter: 2014Q1

REPORT INFORMATION
  Report Type: Spontaneous
  Country: US (occurrence: None)
  Receive Date: 20140218
  Receipt Date: 20140218
  Transmission Date: 20141002
  Serious: Yes (Other)
  Sender: FDA-Public Use
  Company Number: None

PATIENT
  Age: 47 Year
  Sex: Male
  Weight: 108.86 kg

DRUGS (1)
  1. TRETINOIN [Suspect]
     Indication: MYELOID LEUKAEMIA
     Route: 048
     Dates: start: 20140215

REACTIONS (4)
  - Chest pain [None]
  - Asthenia [None]
  - Vision blurred [None]
  - Product quality issue [None]
